FAERS Safety Report 5272335-4 (Version None)
Quarter: 2007Q1

REPORT INFORMATION
  Report Type: 
  Country: None (occurrence: None)
  Receive Date: 20070320
  Receipt Date: 20070320
  Transmission Date: 20070707
  Serious: Yes (Hospitalization)
  Sender: FDA-Public Use
  Company Number: None

PATIENT
  Sex: Male
  Weight: 111.6 kg

DRUGS (7)
  1. ASPIRIN [Suspect]
     Indication: CARDIAC DISORDER
     Dosage: 81MG DAILY PO
     Route: 048
     Dates: start: 20010801
  2. ATORVASTATIN CALCIUM [Concomitant]
  3. LISINOPRIL [Concomitant]
  4. METFORMIN [Concomitant]
  5. ROSIGLITAZONE [Concomitant]
  6. HYDROCHLOROTHIAZIDE [Concomitant]
  7. GLYBURIDE [Concomitant]

REACTIONS (5)
  - DIVERTICULUM [None]
  - DIZZINESS [None]
  - FALL [None]
  - HAEMORRHOIDS [None]
  - LOWER GASTROINTESTINAL HAEMORRHAGE [None]
